FAERS Safety Report 8447961-1 (Version None)
Quarter: 2012Q2

REPORT INFORMATION
  Report Type: 
  Country: None (occurrence: None)
  Receive Date: 20120619
  Receipt Date: 20120614
  Transmission Date: 20120825
  Serious: Yes (Hospitalization)
  Sender: FDA-Public Use
  Company Number: PHEH2012US010175

PATIENT
  Sex: Female
  Weight: 60.771 kg

DRUGS (1)
  1. GILENYA [Suspect]
     Indication: MULTIPLE SCLEROSIS
     Dosage: 0.5 MG, QD
     Route: 048
     Dates: start: 20120514, end: 20120613

REACTIONS (7)
  - CHEST PAIN [None]
  - DYSPNOEA [None]
  - HEART RATE DECREASED [None]
  - OROPHARYNGEAL PAIN [None]
  - HYPOTENSION [None]
  - PALPITATIONS [None]
  - DIZZINESS [None]
